FAERS Safety Report 4463282-6 (Version None)
Quarter: 2004Q3

REPORT INFORMATION
  Report Type: 
  Country: None (occurrence: None)
  Receive Date: 20040930
  Receipt Date: 20040608
  Transmission Date: 20050211
  Serious: Yes (Hospitalization)
  Sender: FDA-Public Use
  Company Number: US-BRISTOL-MYERS SQUIBB COMPANY-12608295

PATIENT
  Age: 47 Year
  Sex: Male
  Weight: 97 kg

DRUGS (6)
  1. REYATAZ [Suspect]
     Indication: HIV INFECTION
     Route: 048
     Dates: start: 20040510, end: 20040530
  2. NORVIR [Concomitant]
  3. VIREAD [Concomitant]
     Route: 048
  4. EPIVIR [Concomitant]
     Route: 048
  5. BACTRIM DS [Concomitant]
     Dosage: DOUBLE STRENGTH
  6. ZESTRIL [Concomitant]
     Dosage: ONCE DAILY
     Route: 048

REACTIONS (4)
  - BLOOD BILIRUBIN INCREASED [None]
  - CHILLS [None]
  - HEADACHE [None]
  - PYREXIA [None]
